FAERS Safety Report 5356618-5 (Version None)
Quarter: 2007Q2

REPORT INFORMATION
  Report Type: 
  Country: None (occurrence: None)
  Receive Date: 20070614
  Receipt Date: 20070612
  Transmission Date: 20071010
  Serious: Yes (Life-Threatening)
  Sender: FDA-Public Use
  Company Number: PHNR2007AU01218

PATIENT
  Age: 29 Year
  Sex: Female

DRUGS (1)
  1. VOLTAREN [Suspect]
     Indication: PAIN
     Dosage: 100 MG, ONCE/SINGLE
     Route: 054
     Dates: start: 20070309, end: 20070309

REACTIONS (4)
  - DYSPNOEA [None]
  - EYELID OEDEMA [None]
  - RESPIRATORY DISTRESS [None]
  - TACHYCARDIA [None]
